FAERS Safety Report 20131342 (Version 2)
Quarter: 2021Q4

REPORT INFORMATION
  Report Type: Spontaneous
  Country: CH (occurrence: CH)
  Receive Date: 20211130
  Receipt Date: 20211201
  Transmission Date: 20220303
  Serious: Yes (Death, Hospitalization)
  Sender: FDA-Public Use
  Company Number: None

PATIENT
  Age: 75 Year
  Sex: Female

DRUGS (10)
  1. ATORVASTATIN [Suspect]
     Active Substance: ATORVASTATIN
     Dosage: 80 MG, 1X/DAY
     Route: 048
     Dates: end: 20210825
  2. COLCHICINE [Suspect]
     Active Substance: COLCHICINE
     Dosage: 0.5 MG, EVERY 48 HOURS
     Route: 048
     Dates: start: 20210302, end: 20210825
  3. LODINE [Suspect]
     Active Substance: ETODOLAC
     Dosage: 300 MG, 2X/DAY (1-0-1)
     Route: 048
     Dates: end: 20210825
  4. DAFALGAN [Concomitant]
     Active Substance: ACETAMINOPHEN
     Dosage: 1 G EVERY 8 H,  AS NEEDED
  5. PANTOPRAZOLE SODIUM [Concomitant]
     Active Substance: PANTOPRAZOLE SODIUM
     Dosage: 40 MG, 2X/DAY (EVERY 12H)
  6. RAMIPRIL [Concomitant]
     Active Substance: RAMIPRIL
     Dosage: 1.25 MG, DAILY (EVERY 24H)
     Route: 048
  7. ASPIRIN [Concomitant]
     Active Substance: ASPIRIN
     Dosage: 100 MG, DAILY (EVERY 24H)
     Route: 048
  8. BISOPROLOL [Concomitant]
     Active Substance: BISOPROLOL
     Dosage: 2.5 MG, 0.5 TABLET EVERY 24H
     Route: 048
  9. TICAGRELOR [Concomitant]
     Active Substance: TICAGRELOR
     Dosage: 90 MG, 2X/DAY (EVERY 12H)
     Route: 048
  10. SPIRONOLACTONE [Concomitant]
     Active Substance: SPIRONOLACTONE
     Dosage: SPIRONOLACTONE (PLACEBO, IN THE CONTEXT OF A STUDY)
     Dates: start: 20210302

REACTIONS (11)
  - Acute kidney injury [Fatal]
  - Metabolic acidosis [Fatal]
  - Hyperkalaemia [Fatal]
  - Pancreatitis [Fatal]
  - Acute hepatic failure [Fatal]
  - Rhabdomyolysis [Fatal]
  - Multiple organ dysfunction syndrome [Fatal]
  - Culture urine positive [Unknown]
  - Drug-induced liver injury [Unknown]
  - Sepsis [Unknown]
  - Gastroenteritis [Unknown]

NARRATIVE: CASE EVENT DATE: 20210801
